FAERS Safety Report 19885915 (Version 1)
Quarter: 2021Q3

REPORT INFORMATION
  Report Type: Other
  Country: LB (occurrence: LB)
  Receive Date: 20210927
  Receipt Date: 20210927
  Transmission Date: 20211014
  Serious: Yes (Other)
  Sender: FDA-Public Use
  Company Number: LB-ROCHE-2917737

PATIENT
  Age: 60 Year
  Sex: Female

DRUGS (4)
  1. GALVUS MET [Concomitant]
     Active Substance: METFORMIN HYDROCHLORIDE\VILDAGLIPTIN
     Indication: PRODUCT USED FOR UNKNOWN INDICATION
     Dosage: UNK
     Route: 065
  2. LUCENTIS [Suspect]
     Active Substance: RANIBIZUMAB
     Indication: DIABETIC RETINAL OEDEMA
     Dosage: 10 MG/ML
     Route: 031
     Dates: start: 20200519, end: 20200721
  3. NEUROBION [Concomitant]
     Active Substance: CYANOCOBALAMIN\PYRIDOXINE\THIAMINE
     Indication: PRODUCT USED FOR UNKNOWN INDICATION
     Dosage: UNK
     Route: 065
  4. MIXTARD HUMAN 70/30 [Concomitant]
     Active Substance: INSULIN HUMAN
     Indication: PRODUCT USED FOR UNKNOWN INDICATION
     Dosage: UNK
     Route: 065

REACTIONS (2)
  - Loss of consciousness [Unknown]
  - Eye pain [Unknown]

NARRATIVE: CASE EVENT DATE: 20210618
